FAERS Safety Report 5031657-2 (Version None)
Quarter: 2006Q2

REPORT INFORMATION
  Report Type: 
  Country: None (occurrence: None)
  Receive Date: 20060616
  Receipt Date: 20060530
  Transmission Date: 20061013
  Serious: Yes (Hospitalization)
  Sender: FDA-Public Use
  Company Number: US200603000461

PATIENT
  Age: 49 Year
  Sex: Male
  Weight: 106.6 kg

DRUGS (3)
  1. ZYPREXA [Suspect]
     Dosage: 5 MG; 2.5 MG
     Dates: start: 20010101, end: 20010201
  2. ZYPREXA [Suspect]
     Dosage: 5 MG; 2.5 MG
     Dates: start: 20010201, end: 20040201
  3. PAXIL [Concomitant]

REACTIONS (4)
  - DIABETES MELLITUS [None]
  - METABOLIC DISORDER [None]
  - MYOCARDIAL INFARCTION [None]
  - VASCULAR BYPASS GRAFT [None]
